FAERS Safety Report 4785182-4 (Version None)
Quarter: 2005Q3

REPORT INFORMATION
  Report Type: 
  Country: None (occurrence: None)
  Receive Date: 20050930
  Receipt Date: 20050909
  Transmission Date: 20060218
  Serious: Yes (Hospitalization, Disabling)
  Sender: FDA-Public Use
  Company Number: MX-MERCK-0509MEX00003

PATIENT
  Age: 23 Year
  Sex: Female

DRUGS (8)
  1. DEFLAZACORT [Concomitant]
     Indication: ANKYLOSING SPONDYLITIS
     Route: 065
  2. DEFLAZACORT [Concomitant]
     Indication: MONARTHRITIS
     Route: 065
  3. METHOTREXATE [Concomitant]
     Indication: ANKYLOSING SPONDYLITIS
     Route: 065
  4. METHOTREXATE [Concomitant]
     Indication: MONARTHRITIS
     Route: 065
  5. VIOXX [Suspect]
     Indication: ANKYLOSING SPONDYLITIS
     Route: 065
  6. VIOXX [Suspect]
     Indication: MONARTHRITIS
     Route: 065
  7. INFLIXIMAB [Suspect]
     Indication: ANKYLOSING SPONDYLITIS
     Route: 065
  8. INFLIXIMAB [Suspect]
     Indication: MONARTHRITIS
     Route: 065

REACTIONS (4)
  - DRUG INEFFECTIVE [None]
  - PAIN [None]
  - PNEUMONIA [None]
  - TUBERCULOSIS [None]
